FAERS Safety Report 4386880-7 (Version None)
Quarter: 2004Q2

REPORT INFORMATION
  Report Type: 
  Country: None (occurrence: None)
  Receive Date: 20040623
  Receipt Date: 20040603
  Transmission Date: 20050107
  Serious: Yes (Hospitalization, Other)
  Sender: FDA-Public Use
  Company Number: USA030331505

PATIENT
  Age: 84 Year
  Sex: Female
  Weight: 48 kg

DRUGS (3)
  1. FORTEO [Suspect]
     Indication: OSTEOPOROSIS
     Dosage: 20 UG
     Dates: start: 20030301, end: 20040519
  2. DIGOXIN [Concomitant]
  3. MULTIVITAMIN [Concomitant]

REACTIONS (12)
  - ARTHRALGIA [None]
  - FALL [None]
  - FEELING ABNORMAL [None]
  - FEMUR FRACTURE [None]
  - GINGIVAL ATROPHY [None]
  - GINGIVAL INFECTION [None]
  - INJECTION SITE BURNING [None]
  - MEDICATION ERROR [None]
  - OVERDOSE [None]
  - PHARMACEUTICAL PRODUCT COMPLAINT [None]
  - SEDATION [None]
  - TREATMENT NONCOMPLIANCE [None]
